FAERS Safety Report 5519132-X (Version None)
Quarter: 2007Q4

REPORT INFORMATION
  Report Type: 
  Country: None (occurrence: None)
  Receive Date: 20071114
  Receipt Date: 20071114
  Transmission Date: 20080405
  Serious: Yes (Other)
  Sender: FDA-Public Use
  Company Number: None

PATIENT
  Age: 65 Year
  Sex: Female
  Weight: 59.55 kg

DRUGS (1)
  1. ZOLEDRONIC ACID [Suspect]
     Indication: BREAST CANCER
     Dosage: 4 MG X2 IV DRIP
     Route: 041
     Dates: start: 20070813, end: 20071101

REACTIONS (2)
  - HYPOAESTHESIA [None]
  - MYALGIA [None]
